FAERS Safety Report 8858123 (Version 1)
Quarter: 2012Q4

REPORT INFORMATION
  Report Type: 
  Country: US (occurrence: US)
  Receive Date: 20121024
  Receipt Date: 20121024
  Transmission Date: 20130627
  Serious: No
  Sender: FDA-Public Use
  Company Number: US-AMGEN-USASP2011064895

PATIENT
  Age: 59 Year
  Sex: Female

DRUGS (8)
  1. ENBREL [Suspect]
     Indication: PRODUCT USED FOR UNKNOWN INDICATION
     Dosage: 50 mg, qwk
  2. LEVOTHYROXIN [Concomitant]
     Dosage: 500 mug, UNK
  3. METOPROLOL [Concomitant]
     Dosage: 50 mg, UNK
  4. PREDNISOLONE [Concomitant]
     Dosage: 5 mg, UNK
  5. CLONAZEPAM [Concomitant]
     Dosage: 1 mg, UNK
  6. LEXAPRO [Concomitant]
     Dosage: 10 mg, UNK
  7. ASPIRIN [Concomitant]
     Dosage: 81 mg, UNK
  8. VITAMIN D [Concomitant]
     Dosage: 400 IU, UNK

REACTIONS (1)
  - Drug ineffective [Unknown]
